FAERS Safety Report 15444543 (Version 2)
Quarter: 2020Q4

REPORT INFORMATION
  Report Type: Report from Study
  Country: US (occurrence: US)
  Receive Date: 20180928
  Receipt Date: 20201126
  Transmission Date: 20210113
  Serious: Yes (Other)
  Sender: FDA-Public Use
  Company Number: US-AMGEN-USASL2018097528

PATIENT
  Age: 71 Year
  Sex: Female

DRUGS (1)
  1. PROLIA [Suspect]
     Active Substance: DENOSUMAB
     Indication: OSTEOPOROSIS POSTMENOPAUSAL
     Dosage: UNK
     Route: 065

REACTIONS (5)
  - Tooth disorder [Unknown]
  - Pain [Unknown]
  - Joint stiffness [Not Recovered/Not Resolved]
  - Dental care [Unknown]
  - Device failure [Unknown]

NARRATIVE: CASE EVENT DATE: 2020
